FAERS Safety Report 4698461-6 (Version None)
Quarter: 2005Q2

REPORT INFORMATION
  Report Type: 
  Country: None (occurrence: None)
  Receive Date: 20050621
  Receipt Date: 20050608
  Transmission Date: 20051028
  Serious: Yes (Hospitalization)
  Sender: FDA-Public Use
  Company Number: DE_050516005

PATIENT
  Age: 51 Year
  Sex: Male

DRUGS (4)
  1. CYMBALTA [Suspect]
     Indication: CHRONIC FATIGUE SYNDROME
     Dosage: 30 MG DAY
     Dates: start: 20050407
  2. ESOMEPRAZOLE [Concomitant]
  3. PREDNISOLONE [Concomitant]
  4. BROMAZEPAM [Concomitant]

REACTIONS (7)
  - ERYTHEMA [None]
  - HAEMORRHAGE [None]
  - JOINT SWELLING [None]
  - LEUKOCYTOCLASTIC VASCULITIS [None]
  - NECROSIS [None]
  - OEDEMA PERIPHERAL [None]
  - PETECHIAE [None]
